FAERS Safety Report 5834084-0 (Version None)
Quarter: 2008Q3

REPORT INFORMATION
  Report Type: 
  Country: None (occurrence: None)
  Receive Date: 20080805
  Receipt Date: 20080730
  Transmission Date: 20090109
  Serious: Yes (Death, Other)
  Sender: FDA-Public Use
  Company Number: US-BRISTOL-MYERS SQUIBB COMPANY-14285621

PATIENT
  Age: 37 Year
  Sex: Female

DRUGS (7)
  1. CYCLOPHOSPHAMIDE [Suspect]
     Indication: BONE MARROW CONDITIONING REGIMEN
  2. ETOPOSIDE [Suspect]
     Indication: BONE MARROW CONDITIONING REGIMEN
  3. CYTARABINE [Suspect]
     Indication: BONE MARROW CONDITIONING REGIMEN
  4. MELPHALAN [Suspect]
     Indication: BONE MARROW CONDITIONING REGIMEN
  5. RADIATION THERAPY [Suspect]
     Indication: BONE MARROW CONDITIONING REGIMEN
  6. CYCLOSPORINE [Suspect]
     Indication: IMMUNOSUPPRESSION
  7. STEROIDS [Suspect]
     Indication: IMMUNOSUPPRESSION

REACTIONS (2)
  - GRAFT VERSUS HOST DISEASE [None]
  - GUILLAIN-BARRE SYNDROME [None]
